FAERS Safety Report 10157812 (Version 1)
Quarter: 2014Q2

REPORT INFORMATION
  Report Type: Report from Study
  Country: US (occurrence: US)
  Receive Date: 20140507
  Receipt Date: 20140507
  Transmission Date: 20141212
  Serious: Yes (Other)
  Sender: FDA-Public Use
  Company Number: US-ABBVIE-14P-163-1231180-00

PATIENT
  Age: 61 Year
  Sex: Female
  Weight: 93.52 kg

DRUGS (11)
  1. HUMIRA [Suspect]
     Indication: PSORIATIC ARTHROPATHY
     Route: 058
  2. REQUIP [Concomitant]
     Indication: RESTLESS LEGS SYNDROME
  3. ALLEGRA [Concomitant]
     Indication: HYPERSENSITIVITY
  4. SYNTHROID [Concomitant]
     Indication: BLOOD THYROID STIMULATING HORMONE DECREASED
  5. CONCERTA [Concomitant]
     Indication: ATTENTION DEFICIT/HYPERACTIVITY DISORDER
  6. LOSARTAN HCTZ [Concomitant]
     Indication: HYPERTENSION
  7. PROTONIX [Concomitant]
     Indication: GASTROOESOPHAGEAL REFLUX DISEASE
  8. VITAMIN D [Concomitant]
     Indication: VITAMIN SUPPLEMENTATION
  9. ESTRADIOL [Concomitant]
     Indication: HOT FLUSH
  10. AVLIMIL [Concomitant]
     Indication: HOT FLUSH
  11. VITAMINS NOS [Concomitant]
     Indication: VITAMIN SUPPLEMENTATION

REACTIONS (6)
  - Exostosis [Recovered/Resolved]
  - Upper limb fracture [Recovered/Resolved]
  - Increased tendency to bruise [Not Recovered/Not Resolved]
  - Blood potassium decreased [Unknown]
  - Scoliosis [Not Recovered/Not Resolved]
  - Neck pain [Not Recovered/Not Resolved]
